FAERS Safety Report 9442356 (Version 1)
Quarter: 2013Q3

REPORT INFORMATION
  Report Type: Spontaneous
  Country: US (occurrence: US)
  Receive Date: 20130806
  Receipt Date: 20130806
  Transmission Date: 20140515
  Serious: No
  Sender: FDA-Public Use
  Company Number: US-GLAXOSMITHKLINE-A1010634A

PATIENT
  Age: 56 Year
  Sex: Female

DRUGS (6)
  1. ADVAIR [Suspect]
     Indication: PNEUMONIA
     Dosage: 1PUFF TWICE PER DAY
     Route: 055
     Dates: start: 20130201
  2. Z PACK [Concomitant]
  3. ROBITUSSIN [Concomitant]
  4. ANTIHYPERTENSIVE [Concomitant]
  5. SYNTHROID [Concomitant]
  6. AZITHROMYCIN [Concomitant]

REACTIONS (3)
  - Dyspnoea [Recovered/Resolved]
  - Feeling hot [Unknown]
  - Dyspnoea [Unknown]
